FAERS Safety Report 10639850 (Version 2)
Quarter: 2014Q4

REPORT INFORMATION
  Report Type: Spontaneous
  Country: US (occurrence: US)
  Receive Date: 20141209
  Receipt Date: 20141217
  Transmission Date: 20150529
  Serious: No
  Sender: FDA-Public Use
  Company Number: US-BAYER-2014-179172

PATIENT
  Sex: Female

DRUGS (1)
  1. BETASERON [Suspect]
     Active Substance: INTERFERON BETA-1B
     Dosage: UNK

REACTIONS (2)
  - Injection site bruising [None]
  - Injection site pain [None]

NARRATIVE: CASE EVENT DATE: 2009
